FAERS Safety Report 8348158-6 (Version None)
Quarter: 2012Q2

REPORT INFORMATION
  Report Type: 
  Country: None (occurrence: None)
  Receive Date: 20120509
  Receipt Date: 20120430
  Transmission Date: 20120825
  Serious: Yes (Other)
  Sender: FDA-Public Use
  Company Number: US-BRISTOL-MYERS SQUIBB COMPANY-16560849

PATIENT
  Age: 6 Decade
  Sex: Male

DRUGS (1)
  1. YERVOY [Suspect]
     Dosage: LAST TREATMENT ON 11APR

REACTIONS (2)
  - MUSCULAR WEAKNESS [None]
  - SPEECH DISORDER [None]
